FAERS Safety Report 8958176 (Version 1)
Quarter: 2012Q4

REPORT INFORMATION
  Report Type: 
  Country: US (occurrence: US)
  Receive Date: 20121211
  Receipt Date: 20121211
  Transmission Date: 20130627
  Serious: No
  Sender: FDA-Public Use
  Company Number: US-009507513-1212USA001038

PATIENT
  Sex: Male

DRUGS (2)
  1. CLARITIN REDITABS [Suspect]
     Indication: NASOPHARYNGITIS
     Dosage: UNK, Unknown
     Route: 048
  2. CLARITIN REDITABS [Suspect]
     Indication: MEDICAL OBSERVATION

REACTIONS (2)
  - Off label use [Unknown]
  - Drug ineffective for unapproved indication [Unknown]
